FAERS Safety Report 7277671-8 (Version None)
Quarter: 2011Q1

REPORT INFORMATION
  Report Type: 
  Country: None (occurrence: None)
  Receive Date: 20110207
  Receipt Date: 20110131
  Transmission Date: 20110831
  Serious: Yes (Life-Threatening)
  Sender: FDA-Public Use
  Company Number: DE-JNJFOC-20110201347

PATIENT

DRUGS (4)
  1. MICONAZOLE [Suspect]
     Route: 042
  2. MICONAZOLE [Suspect]
     Route: 048
  3. MICONAZOLE [Suspect]
     Indication: ILL-DEFINED DISORDER
     Route: 042
  4. MICONAZOLE [Suspect]
     Route: 048

REACTIONS (7)
  - OLIGURIA [None]
  - COMA [None]
  - RENAL IMPAIRMENT [None]
  - METABOLIC ACIDOSIS [None]
  - SHOCK [None]
  - HYPOTENSION [None]
  - HYPERKALAEMIA [None]
